FAERS Safety Report 5557676-5 (Version None)
Quarter: 2007Q4

REPORT INFORMATION
  Report Type: 
  Country: None (occurrence: None)
  Receive Date: 20071130
  Receipt Date: 20070919
  Transmission Date: 20080405
  Serious: No
  Sender: FDA-Public Use
  Company Number: US200709000660

PATIENT
  Age: 63 Year
  Sex: Male

DRUGS (8)
  1. BYETTA [Suspect]
     Indication: INSULIN-REQUIRING TYPE II DIABETES MELLITUS
     Dosage: SEE IMAGE
     Route: 058
     Dates: end: 20070101
  2. BYETTA [Suspect]
     Indication: INSULIN-REQUIRING TYPE II DIABETES MELLITUS
     Dosage: SEE IMAGE
     Route: 058
     Dates: start: 20070101, end: 20070701
  3. BYETTA [Suspect]
     Indication: INSULIN-REQUIRING TYPE II DIABETES MELLITUS
     Dosage: SEE IMAGE
     Route: 058
     Dates: start: 20070903, end: 20070903
  4. BYETTA [Suspect]
     Indication: INSULIN-REQUIRING TYPE II DIABETES MELLITUS
     Dosage: SEE IMAGE
     Route: 058
     Dates: start: 20070101
  5. BYETTA [Suspect]
     Indication: INSULIN-REQUIRING TYPE II DIABETES MELLITUS
     Dosage: SEE IMAGE
     Route: 058
     Dates: start: 20070701
  6. NPH INSULIN (INSULIN INJECTION, ISOPHANE) [Concomitant]
  7. INSULIN, REGULAR (INSULIN) [Concomitant]
  8. PLAVIX [Concomitant]

REACTIONS (8)
  - ABDOMINAL DISTENSION [None]
  - ACCIDENTAL OVERDOSE [None]
  - DIARRHOEA [None]
  - FLATULENCE [None]
  - INCORRECT DOSE ADMINISTERED [None]
  - NAUSEA [None]
  - PALPITATIONS [None]
  - VOMITING [None]
